FAERS Safety Report 7747868-9 (Version None)
Quarter: 2011Q3

REPORT INFORMATION
  Report Type: 
  Country: None (occurrence: None)
  Receive Date: 20110913
  Receipt Date: 20110621
  Transmission Date: 20111222
  Serious: No
  Sender: FDA-Public Use
  Company Number: US-ALLERGAN-1108440US

PATIENT
  Age: 51 Year
  Sex: Female

DRUGS (2)
  1. LATISSE [Suspect]
     Dosage: UNK
     Dates: start: 20110120
  2. LATISSE [Suspect]
     Indication: GROWTH OF EYELASHES
     Dosage: UNK
     Dates: start: 20110615

REACTIONS (4)
  - VISION BLURRED [None]
  - EYELASH DISCOLOURATION [None]
  - EYE PRURITUS [None]
  - LACRIMATION INCREASED [None]
